FAERS Safety Report 17287878 (Version 2)
Quarter: 2020Q2

REPORT INFORMATION
  Report Type: Spontaneous
  Country: US (occurrence: US)
  Receive Date: 20200120
  Receipt Date: 20200415
  Transmission Date: 20200713
  Serious: Yes (Other)
  Sender: FDA-Public Use
  Company Number: US-GILEAD-2020-0447078

PATIENT
  Sex: Male
  Weight: 89.9 kg

DRUGS (5)
  1. 3TC [Concomitant]
     Active Substance: LAMIVUDINE
     Indication: HIV INFECTION
  2. ATRIPLA [Suspect]
     Active Substance: EFAVIRENZ\EMTRICITABINE\TENOFOVIR DISOPROXIL FUMARATE
     Indication: HIV INFECTION
     Dosage: UNK
     Route: 048
     Dates: start: 200607, end: 201711
  3. AZT [Concomitant]
     Active Substance: ZIDOVUDINE
     Indication: HIV INFECTION
  4. INDINAVIR [Concomitant]
     Active Substance: INDINAVIR
     Indication: HIV INFECTION
  5. WELLBUTRIN [Concomitant]
     Active Substance: BUPROPION HYDROCHLORIDE

REACTIONS (10)
  - Anxiety [Unknown]
  - Renal failure [Unknown]
  - Tooth loss [Unknown]
  - Pain [Unknown]
  - Chronic kidney disease [Unknown]
  - End stage renal disease [Unknown]
  - Bone density abnormal [Unknown]
  - Anhedonia [Unknown]
  - Economic problem [Unknown]
  - Emotional distress [Unknown]

NARRATIVE: CASE EVENT DATE: 2013
